FAERS Safety Report 20594861 (Version 1)
Quarter: 2022Q1

REPORT INFORMATION
  Report Type: Spontaneous
  Country: US (occurrence: None)
  Receive Date: 20220315
  Receipt Date: 20220315
  Transmission Date: 20220423
  Serious: No
  Sender: FDA-Public Use
  Company Number: US-ROCHE-2900140

PATIENT
  Sex: Female

DRUGS (1)
  1. XOLAIR [Suspect]
     Active Substance: OMALIZUMAB
     Indication: Asthma
     Dosage: XOLAIR 150MG VIAL
     Route: 058
     Dates: start: 20190124

REACTIONS (4)
  - Rhinorrhoea [Unknown]
  - Illness [Unknown]
  - Product dose omission issue [Unknown]
  - Infection [Unknown]
